FAERS Safety Report 8875542 (Version 2)
Quarter: 2014Q2

REPORT INFORMATION
  Report Type: Spontaneous
  Country: CN (occurrence: CN)
  Receive Date: 20121030
  Receipt Date: 20140606
  Transmission Date: 20141212
  Serious: Yes (Hospitalization, Other)
  Sender: FDA-Public Use
  Company Number: CN-JNJFOC-20121015533

PATIENT
  Age: 12 Month
  Sex: 0

DRUGS (4)
  1. TOPAMAX [Suspect]
     Indication: EPILEPSY
     Route: 048
     Dates: start: 20121015
  2. TOPAMAX [Suspect]
     Indication: EPILEPSY
     Route: 048
     Dates: start: 20121012, end: 20121014
  3. RIBAVIRIN [Concomitant]
     Indication: DIARRHOEA
     Route: 048
  4. SMECTITE [Concomitant]
     Indication: DIARRHOEA
     Route: 048

REACTIONS (5)
  - Saccadic eye movement [Recovered/Resolved]
  - Tremor [Recovered/Resolved]
  - Convulsion [Recovering/Resolving]
  - Diarrhoea [Recovered/Resolved]
  - Drug administered to patient of inappropriate age [Unknown]
